FAERS Safety Report 6993198-2 (Version None)
Quarter: 2010Q3

REPORT INFORMATION
  Report Type: 
  Country: None (occurrence: None)
  Receive Date: 20100917
  Receipt Date: 20091001
  Transmission Date: 20110219
  Serious: No
  Sender: FDA-Public Use
  Company Number: US-ASTRAZENECA-2009SE17220

PATIENT
  Age: 49 Year
  Sex: Male
  Weight: 98.9 kg

DRUGS (2)
  1. SEROQUEL [Suspect]
     Indication: BIPOLAR DISORDER
     Route: 048
     Dates: start: 20090901, end: 20090908
  2. ATENOLOL [Concomitant]
     Route: 065

REACTIONS (6)
  - AGGRESSION [None]
  - DYSPEPSIA [None]
  - HALLUCINATION, AUDITORY [None]
  - INSOMNIA [None]
  - MICTURITION URGENCY [None]
  - SUICIDAL IDEATION [None]
